FAERS Safety Report 5281086-1 (Version None)
Quarter: 2007Q1

REPORT INFORMATION
  Report Type: 
  Country: None (occurrence: None)
  Receive Date: 20061229
  Receipt Date: 20060621
  Transmission Date: 20070707
  Serious: Yes (Other)
  Sender: FDA-Public Use
  Company Number: 2006UW13173

PATIENT
  Age: 83 Year
  Sex: Female
  Weight: 62.595 kg

DRUGS (11)
  1. CRESTOR [Suspect]
     Indication: BLOOD CHOLESTEROL INCREASED
     Dosage: 10 MG PO
     Route: 048
  2. NORVASC [Concomitant]
  3. TOPROL-XL [Concomitant]
  4. AVALIDE [Concomitant]
  5. OMEPRAZOLE [Concomitant]
  6. CILOSTAZOL [Concomitant]
  7. AMARYL [Concomitant]
  8. OMEGA FISH OIL [Concomitant]
  9. VITAMIN CAP [Concomitant]
  10. CALCIUM [Concomitant]
  11. ASPIRIN [Concomitant]

REACTIONS (5)
  - DYSPEPSIA [None]
  - HYPERHIDROSIS [None]
  - INSOMNIA [None]
  - MIDDLE INSOMNIA [None]
  - STOMACH DISCOMFORT [None]
